FAERS Safety Report 16164742 (Version 2)
Quarter: 2019Q2

REPORT INFORMATION
  Report Type: Spontaneous
  Country: DE (occurrence: DE)
  Receive Date: 20190405
  Receipt Date: 20190530
  Transmission Date: 20190711
  Serious: Yes (Death, Other)
  Sender: FDA-Public Use
  Company Number: DE-TAKEDA-2019TUS020031

PATIENT
  Age: 60 Year
  Sex: Female
  Weight: 142 kg

DRUGS (1)
  1. ENTYVIO [Suspect]
     Active Substance: VEDOLIZUMAB
     Indication: COLITIS ULCERATIVE
     Dosage: 300 MILLIGRAM
     Route: 042
     Dates: start: 20181106, end: 20181218

REACTIONS (5)
  - Pneumonia [Fatal]
  - Hypoxia [Fatal]
  - Respiratory failure [Fatal]
  - Tracheitis [Fatal]
  - Obstructive airways disorder [Fatal]

NARRATIVE: CASE EVENT DATE: 20190208
